FAERS Safety Report 5374699-X (Version None)
Quarter: 2007Q2

REPORT INFORMATION
  Report Type: 
  Country: None (occurrence: None)
  Receive Date: 20070629
  Receipt Date: 20070619
  Transmission Date: 20071010
  Serious: Yes (Other)
  Sender: FDA-Public Use
  Company Number: US-JNJFOC-20070604749

PATIENT
  Sex: Female
  Weight: 60.33 kg

DRUGS (7)
  1. FENTANYL TRANSDERMAL SYSTEM [Suspect]
     Route: 062
  2. FENTANYL TRANSDERMAL SYSTEM [Suspect]
     Indication: PAIN
     Route: 062
  3. DURAGESIC-100 [Suspect]
     Indication: PAIN
     Route: 062
  4. LOPRESSOR [Concomitant]
     Indication: BLOOD PRESSURE
     Route: 048
  5. SYNTHROID [Concomitant]
     Indication: THYROID DISORDER
     Route: 048
  6. ECOTRIN [Concomitant]
     Indication: CARDIAC DISORDER
     Route: 048
  7. VALSARTAN [Concomitant]
     Indication: BLOOD PRESSURE
     Route: 048

REACTIONS (7)
  - BONE PAIN [None]
  - CHEST PAIN [None]
  - CRYING [None]
  - DEPRESSION [None]
  - FEELING COLD [None]
  - INADEQUATE ANALGESIA [None]
  - TREMOR [None]
